FAERS Safety Report 7429396-3 (Version None)
Quarter: 2011Q2

REPORT INFORMATION
  Report Type: 
  Country: None (occurrence: None)
  Receive Date: 20110421
  Receipt Date: 20110408
  Transmission Date: 20111010
  Serious: Yes (Hospitalization)
  Sender: FDA-Public Use
  Company Number: PL-MYLANLABS-2011S1007707

PATIENT
  Age: 48 Year
  Sex: Male

DRUGS (2)
  1. ATORVASTATIN [Suspect]
     Indication: HYPERLIPIDAEMIA
     Dosage: AT NIGHT
     Route: 065
  2. FENOFIBRATE [Suspect]
     Indication: HYPERLIPIDAEMIA

REACTIONS (1)
  - EXTRAOCULAR MUSCLE DISORDER [None]
